FAERS Safety Report 7559022-4 (Version None)
Quarter: 2011Q2

REPORT INFORMATION
  Report Type: 
  Country: None (occurrence: None)
  Receive Date: 20110621
  Receipt Date: 20110617
  Transmission Date: 20111010
  Serious: No
  Sender: FDA-Public Use
  Company Number: US-PFIZER INC-2011134230

PATIENT
  Sex: Female
  Weight: 61.224 kg

DRUGS (1)
  1. PRISTIQ [Suspect]
     Indication: DEPRESSION
     Dosage: 50 MG, DAILY
     Route: 048
     Dates: start: 20110101, end: 20110611

REACTIONS (4)
  - FEELING ABNORMAL [None]
  - AGITATION [None]
  - HALLUCINATION [None]
  - ANXIETY [None]
